FAERS Safety Report 11192099 (Version 1)
Quarter: 2015Q2

REPORT INFORMATION
  Report Type: Spontaneous
  Country: US (occurrence: US)
  Receive Date: 20150616
  Receipt Date: 20150616
  Transmission Date: 20150821
  Serious: No
  Sender: FDA-Public Use
  Company Number: US-BIOGENIDEC-2015BI080321

PATIENT
  Sex: Female

DRUGS (2)
  1. TECFIDERA [Suspect]
     Active Substance: DIMETHYL FUMARATE
     Indication: MULTIPLE SCLEROSIS
  2. TECFIDERA [Suspect]
     Active Substance: DIMETHYL FUMARATE
     Indication: MULTIPLE SCLEROSIS

REACTIONS (7)
  - Drug dose omission [Unknown]
  - Skin abrasion [Recovered/Resolved]
  - Memory impairment [Unknown]
  - Immune system disorder [Recovered/Resolved]
  - Contusion [Recovered/Resolved]
  - Limb injury [Recovered/Resolved]
  - Malaise [Recovered/Resolved]
